FAERS Safety Report 4652734-1 (Version None)
Quarter: 2005Q2

REPORT INFORMATION
  Report Type: 
  Country: None (occurrence: None)
  Receive Date: 20050502
  Receipt Date: 20050625
  Transmission Date: 20051028
  Serious: Yes (Disabling, Other)
  Sender: FDA-Public Use
  Company Number: 2004116116

PATIENT
  Age: 67 Year
  Sex: Female
  Weight: 68.0396 kg

DRUGS (3)
  1. NEOSPORIN PLUS PAIN RELIEF MAXIMUM STRENGTH(POLYMYXKIN B SULFATE,BACIT [Suspect]
     Indication: SCAR
     Dosage: PEA SIZE TWICE A DAY, TOPICAL
     Route: 061
     Dates: end: 20041125
  2. PRAVASTATIN SODIUM [Concomitant]
  3. ASPIRIN [Concomitant]

REACTIONS (10)
  - ACTIVITIES OF DAILY LIVING IMPAIRED [None]
  - BLISTER [None]
  - BURNING SENSATION [None]
  - DISCOMFORT [None]
  - DRUG HYPERSENSITIVITY [None]
  - ERYTHEMA [None]
  - INFECTION [None]
  - INSOMNIA [None]
  - MOBILITY DECREASED [None]
  - PRURITUS [None]
